FAERS Safety Report 9399485 (Version 1)
Quarter: 2013Q3

REPORT INFORMATION
  Report Type: Spontaneous
  Country: US (occurrence: None)
  Receive Date: 20130710
  Receipt Date: 20130710
  Transmission Date: 20140515
  Serious: Yes (Hospitalization, Other)
  Sender: FDA-Public Use
  Company Number: 2013EXPUS00121

PATIENT
  Sex: Female

DRUGS (1)
  1. EXPAREL [Suspect]
     Indication: POSTOPERATIVE ANALGESIA
     Dosage: INFILTRATION?
     Dates: start: 20130624, end: 20130624

REACTIONS (1)
  - Ischaemic stroke [None]
